FAERS Safety Report 8618213-1 (Version None)
Quarter: 2012Q3

REPORT INFORMATION
  Report Type: 
  Country: None (occurrence: None)
  Receive Date: 20120824
  Receipt Date: 20120811
  Transmission Date: 20120928
  Serious: Yes (Hospitalization)
  Sender: FDA-Public Use
  Company Number: DE-MYLANLABS-2012S1016641

PATIENT
  Age: 52 Year
  Sex: Male

DRUGS (3)
  1. DOXEPIN [Suspect]
     Route: 048
     Dates: start: 20120811
  2. TRAMADOL HCL [Suspect]
     Route: 048
  3. VOLTAREN [Suspect]
     Route: 048

REACTIONS (3)
  - GASTROINTESTINAL SOUNDS ABNORMAL [None]
  - ALCOHOL POISONING [None]
  - SUICIDE ATTEMPT [None]
